FAERS Safety Report 5357989-6 (Version None)
Quarter: 2007Q2

REPORT INFORMATION
  Report Type: 
  Country: None (occurrence: None)
  Receive Date: 20070612
  Receipt Date: 20070604
  Transmission Date: 20071010
  Serious: Yes (Life-Threatening, Hospitalization, Other)
  Sender: FDA-Public Use
  Company Number: 234529K07USA

PATIENT
  Age: 48 Year
  Sex: Female

DRUGS (6)
  1. REBIF [Suspect]
     Indication: MULTIPLE SCLEROSIS
     Dosage: 22 MCG, 3 IN 1 WEEKS, SUBCUTANEOUS
     Route: 058
     Dates: start: 20070530, end: 20070530
  2. NIFEDIPINE [Concomitant]
  3. GABAPENTIN [Concomitant]
  4. TIZANIDINE HCL [Concomitant]
  5. RITALIN [Concomitant]
  6. EFFEXOR [Concomitant]

REACTIONS (2)
  - FOREIGN BODY ASPIRATION [None]
  - PANCREATITIS [None]
